FAERS Safety Report 19892837 (Version 1)
Quarter: 2021Q3

REPORT INFORMATION
  Report Type: Spontaneous
  Country: CL (occurrence: CL)
  Receive Date: 20210928
  Receipt Date: 20210928
  Transmission Date: 20211014
  Serious: Yes (Hospitalization)
  Sender: FDA-Public Use
  Company Number: CL-BIOMARINAP-CL-2021-138720

PATIENT
  Age: 26 Year
  Sex: Female
  Weight: 31.5 kg

DRUGS (1)
  1. VIMIZIM [Suspect]
     Active Substance: ELOSULFASE ALFA
     Indication: MUCOPOLYSACCHARIDOSIS IV
     Dosage: 13 VIALS, QW
     Route: 042

REACTIONS (1)
  - Catheter placement [Recovering/Resolving]

NARRATIVE: CASE EVENT DATE: 20210921
